FAERS Safety Report 9408623 (Version 2)
Quarter: 2013Q4

REPORT INFORMATION
  Report Type: Spontaneous
  Country: US (occurrence: None)
  Receive Date: 20130716
  Receipt Date: 20131114
  Transmission Date: 20140711
  Serious: Yes (Hospitalization, Other)
  Sender: FDA-Public Use
  Company Number: JPI-P-033403

PATIENT
  Age: 61 Year
  Sex: Male

DRUGS (5)
  1. XYREM (SODIUM OXYBATE) ORAL SOLUTION, 500MG/ML [Suspect]
     Indication: NARCOLEPSY
     Dosage: 4.5 GM (2.25 GM, 2 IN 1 D), ORAL
     Route: 048
     Dates: start: 200402, end: 200406
  2. XYREM (SODIUM OXYBATE) ORAL SOLUTION, 500MG/ML [Suspect]
     Indication: CATAPLEXY
     Dosage: 4.5 GM (2.25 GM, 2 IN 1 D), ORAL
     Route: 048
     Dates: start: 200402, end: 200406
  3. HIGH BLOOD PRESSURE MEDICATIONS [Concomitant]
  4. HIGH CHOLESTEROL MEDICATION [Concomitant]
  5. BLOOD THINNER MEDICATION [Concomitant]

REACTIONS (4)
  - Chest pain [None]
  - Coronary arterial stent insertion [None]
  - Coronary artery occlusion [None]
  - Myocardial infarction [None]
